APPROVED DRUG PRODUCT: ULTRACEF
Active Ingredient: CEFADROXIL/CEFADROXIL HEMIHYDRATE
Strength: EQ 125MG BASE/5ML
Dosage Form/Route: FOR SUSPENSION;ORAL
Application: A062376 | Product #001
Applicant: BRISTOL LABORATORIES INC DIV BRISTOL MYERS CO
Approved: Mar 16, 1982 | RLD: No | RS: No | Type: DISCN